FAERS Safety Report 5591919-7 (Version None)
Quarter: 2008Q1

REPORT INFORMATION
  Report Type: 
  Country: None (occurrence: None)
  Receive Date: 20080115
  Receipt Date: 20080110
  Transmission Date: 20080703
  Serious: Yes (Other)
  Sender: FDA-Public Use
  Company Number: SE-ELI_LILLY_AND_COMPANY-SE200801002184

PATIENT
  Age: 64 Year
  Sex: Male

DRUGS (5)
  1. CIALIS [Suspect]
     Indication: PROSTATISM
     Dosage: UNK, UNKNOWN
     Route: 048
     Dates: start: 20050101
  2. XATRAL                                  /FRA/ [Concomitant]
     Indication: PROSTATISM
     Dosage: 10 MG, DAILY (1/D)
     Route: 065
     Dates: start: 20060601
  3. VESICARE [Concomitant]
     Indication: PROSTATISM
     Dosage: 5 MG, UNK
     Route: 048
     Dates: start: 20060601
  4. TIPAROL [Concomitant]
     Indication: PROSTATISM
     Dosage: 50 D/F, UNKNOWN
     Route: 048
     Dates: start: 20060601
  5. VIAGRA [Concomitant]
     Indication: PROSTATISM
     Dosage: UNK, UNKNOWN
     Route: 065
     Dates: start: 20050101

REACTIONS (3)
  - GLAUCOMA [None]
  - IRIS NEOVASCULARISATION [None]
  - SKIN EXFOLIATION [None]
